FAERS Safety Report 9035120 (Version 1)
Quarter: 2013Q1

REPORT INFORMATION
  Report Type: Report from Study
  Country: US (occurrence: US)
  Receive Date: 20130129
  Receipt Date: 20130129
  Transmission Date: 20140127
  Serious: No
  Sender: FDA-Public Use
  Company Number: US-ABBOTT-12P-163-0889124-00

PATIENT
  Age: 49 Year
  Sex: Female

DRUGS (3)
  1. HUMIRA 40 MG/0.8 ML PEN [Suspect]
     Indication: HIDRADENITIS
     Dates: start: 201106, end: 20111210
  2. GABAPENTIN [Concomitant]
     Indication: PAIN
  3. HYDROCODONE [Concomitant]
     Indication: PAIN
     Dosage: 5/325 AS REQUIRED

REACTIONS (3)
  - Hidradenitis [Not Recovered/Not Resolved]
  - Wrong technique in drug usage process [Unknown]
  - Incorrect dose administered [Unknown]
